FAERS Safety Report 4525229-3 (Version None)
Quarter: 2004Q4

REPORT INFORMATION
  Report Type: 
  Country: None (occurrence: None)
  Receive Date: 20041213
  Receipt Date: 20041201
  Transmission Date: 20050328
  Serious: Yes (Other)
  Sender: FDA-Public Use
  Company Number: AU-MERCK-0412AUS00017

PATIENT
  Age: 69 Year
  Sex: Female

DRUGS (5)
  1. VIOXX [Suspect]
     Route: 048
     Dates: start: 20020901, end: 20040801
  2. ESOMEPRAZOLE MAGNESIUM [Concomitant]
     Route: 065
  3. ASPIRIN [Concomitant]
     Route: 065
  4. LEVOTHYROXINE SODIUM [Concomitant]
     Route: 065
  5. HYDROXYCHLOROQUINE SULFATE [Concomitant]
     Route: 065

REACTIONS (4)
  - BLOOD PRESSURE INCREASED [None]
  - CEREBROVASCULAR ACCIDENT [None]
  - DIPLOPIA [None]
  - TRANSIENT ISCHAEMIC ATTACK [None]
